FAERS Safety Report 9659743 (Version 1)
Quarter: 2013Q4

REPORT INFORMATION
  Report Type: Spontaneous
  Country: US (occurrence: US)
  Receive Date: 20131031
  Receipt Date: 20131031
  Transmission Date: 20140711
  Serious: No
  Sender: FDA-Public Use
  Company Number: US-PFIZER INC-2013308093

PATIENT
  Sex: Female

DRUGS (5)
  1. ADVIL COLD AND SINUS [Suspect]
     Indication: MALAISE
     Dosage: UNK
  2. ASPIRIN [Concomitant]
     Indication: ANTICOAGULANT THERAPY
     Dosage: UNK
  3. ASPIRIN [Concomitant]
     Indication: CARDIAC DISORDER
  4. PLAVIX [Concomitant]
     Indication: ANTICOAGULANT THERAPY
     Dosage: UNK
  5. PLAVIX [Concomitant]
     Indication: CARDIAC DISORDER

REACTIONS (2)
  - Off label use [Unknown]
  - Abdominal pain upper [Unknown]
